FAERS Safety Report 7598262-5 (Version None)
Quarter: 2011Q3

REPORT INFORMATION
  Report Type: 
  Country: None (occurrence: None)
  Receive Date: 20110708
  Receipt Date: 20110707
  Transmission Date: 20111222
  Serious: Yes (Hospitalization)
  Sender: FDA-Public Use
  Company Number: JP-B.I. PHARMACEUTICALS,INC./RIDGEFIELD-2011-BP-17114NB

PATIENT
  Age: 79 Year
  Sex: Male

DRUGS (13)
  1. YOKU-KAN-SAN [Concomitant]
     Route: 065
  2. LASIX [Concomitant]
     Dosage: 90 MG
     Route: 065
  3. BUFFERIN [Concomitant]
     Dosage: 81 MG
     Route: 065
  4. ALDACTONE [Concomitant]
     Dosage: 20 MG
     Route: 065
  5. SERMION [Concomitant]
     Dosage: 10 MG
     Route: 065
  6. RHYTHMY [Concomitant]
     Dosage: 2 MG
     Route: 065
  7. SELBEX [Concomitant]
     Dosage: 2 ANZ
     Route: 065
  8. LANSOPRAZOLE [Concomitant]
     Dosage: 30 MG
     Route: 065
  9. NORVASC [Concomitant]
     Dosage: 2.5 MG
     Route: 065
  10. KETAS [Concomitant]
     Route: 065
  11. SIGMART [Concomitant]
     Dosage: 10 MG
     Route: 065
  12. PRADAXA [Suspect]
     Indication: ATRIAL FIBRILLATION
     Dosage: 220 MG
     Route: 048
     Dates: start: 20110616, end: 20110621
  13. ALLOPURINOL [Concomitant]
     Dosage: 200 MG
     Route: 065

REACTIONS (2)
  - GASTROINTESTINAL DISORDER [None]
  - BRADYCARDIA [None]
